FAERS Safety Report 25354277 (Version 1)
Quarter: 2025Q2

REPORT INFORMATION
  Report Type: Spontaneous
  Country: US (occurrence: US)
  Receive Date: 20250523
  Receipt Date: 20250523
  Transmission Date: 20250716
  Serious: No
  Sender: SANOFI AVENTIS
  Company Number: US-SA-2025SA147348

PATIENT
  Age: 59 Year
  Sex: Male

DRUGS (4)
  1. DUPIXENT [Suspect]
     Active Substance: DUPILUMAB
     Indication: Dermatitis atopic
     Route: 058
     Dates: start: 20230726, end: 2024
  2. LISINOPRIL [Concomitant]
     Active Substance: LISINOPRIL
  3. QUETIAPINE [Concomitant]
     Active Substance: QUETIAPINE
  4. LOSARTAN [Concomitant]
     Active Substance: LOSARTAN

REACTIONS (3)
  - Corneal lesion [Unknown]
  - Dry eye [Unknown]
  - Eczema [Unknown]
